FAERS Safety Report 7650216-6 (Version None)
Quarter: 2011Q3

REPORT INFORMATION
  Report Type: 
  Country: None (occurrence: None)
  Receive Date: 20110719
  Receipt Date: 20101213
  Transmission Date: 20111222
  Serious: Yes (Hospitalization)
  Sender: FDA-Public Use
  Company Number: 163-21880-10020381

PATIENT
  Age: 68 Year
  Sex: Male
  Weight: 109.5 kg

DRUGS (33)
  1. LIDOCAINE (LIDOCAINE) (UNKNOWN) [Concomitant]
  2. TERAZOSIN HCL [Concomitant]
  3. LORAZEPAM [Concomitant]
  4. BENZONATATE [Concomitant]
  5. KEFLEX (CEFALEXIN MONOHYDRATE) (UNKNOWN) [Concomitant]
  6. NORMAL SALINE (SODIUM CHLORIDE) (UNKNOWN) [Concomitant]
  7. COMPAZINE (PROCHLORPERAZINE EDISYLATE) (TABLETS) [Concomitant]
  8. TYLENOL (PARACETAMOL) (TABLETS) [Concomitant]
  9. ERTAPENEM (ERTAPENEM) (UNKNOWN) [Concomitant]
  10. SCOPOLAMINE (HYOSCINE) (POULTICE OR PATCH) [Concomitant]
  11. DEXAMETHASONE [Concomitant]
  12. CASPOFUNGIN (CASPOFUNGIN) (UNKNOWN) [Concomitant]
  13. VORICONAZOLE [Concomitant]
  14. VANCOMYCIN [Concomitant]
  15. PREDNISONE [Concomitant]
  16. CEFEPIME (CEFEPIME) (TABLETS) [Concomitant]
  17. REVLIMID [Suspect]
     Indication: ACUTE MYELOID LEUKAEMIA
     Dosage: 25 MG, DAILY, PO ; 25 MG, DAILY, PO
     Route: 048
     Dates: start: 20091216
  18. REVLIMID [Suspect]
     Indication: ACUTE MYELOID LEUKAEMIA
     Dosage: 25 MG, DAILY, PO ; 25 MG, DAILY, PO
     Route: 048
     Dates: start: 20100129, end: 20100206
  19. AZACITIDINE [Suspect]
     Indication: ACUTE MYELOID LEUKAEMIA
     Dosage: 75 MG/M2, DAILY, IV ; 75 MG/M2, IV ; 75 MG/M2, IV ; 75MG/M2, IV
     Route: 042
     Dates: end: 20100205
  20. AZACITIDINE [Suspect]
     Indication: ACUTE MYELOID LEUKAEMIA
     Dosage: 75 MG/M2, DAILY, IV ; 75 MG/M2, IV ; 75 MG/M2, IV ; 75MG/M2, IV
     Route: 042
     Dates: start: 20091216, end: 20091217
  21. AZACITIDINE [Suspect]
     Indication: ACUTE MYELOID LEUKAEMIA
     Dosage: 75 MG/M2, DAILY, IV ; 75 MG/M2, IV ; 75 MG/M2, IV ; 75MG/M2, IV
     Route: 042
     Dates: start: 20091223, end: 20091227
  22. AZACITIDINE [Suspect]
     Indication: ACUTE MYELOID LEUKAEMIA
     Dosage: 75 MG/M2, DAILY, IV ; 75 MG/M2, IV ; 75 MG/M2, IV ; 75MG/M2, IV
     Route: 042
     Dates: start: 20100129, end: 20100131
  23. MORPHINE [Concomitant]
  24. DIPHENHYDRAMINE HCL [Concomitant]
  25. DOXYCYCLINE [Concomitant]
  26. PLATELET TRANSFUSIONS (PLATELETS) (UNKNOWN) [Concomitant]
  27. POTASSIUM CHLORIDE (POTASSIUM CHLORIDE) (SUSTAINED-RELEASE TABLET) [Concomitant]
  28. LEVAQUIN [Concomitant]
  29. IPRATROPIUM (IPRATROPIUM) (INHALANT) [Concomitant]
  30. VICODIN [Concomitant]
  31. ZOFRAN [Concomitant]
  32. COMBIVENT (COMBIVENT) (INHALANT) [Concomitant]
  33. SODIUM BICARBONATE (SODIUM BICARBONATE) (UNKNOWN) [Concomitant]

REACTIONS (1)
  - FEBRILE NEUTROPENIA [None]
